FAERS Safety Report 14334360 (Version 5)
Quarter: 2018Q3

REPORT INFORMATION
  Report Type: Report from Study
  Country: US (occurrence: US)
  Receive Date: 20171228
  Receipt Date: 20180921
  Transmission Date: 20181010
  Serious: Yes (Hospitalization)
  Sender: FDA-Public Use
  Company Number: US-ACTELION-A-NJ2017-164809

PATIENT
  Age: 78 Year
  Sex: Female
  Weight: 74.38 kg

DRUGS (2)
  1. ADCIRCA [Concomitant]
     Active Substance: TADALAFIL
  2. TRACLEER [Suspect]
     Active Substance: BOSENTAN
     Indication: PULMONARY ARTERIAL HYPERTENSION
     Dosage: 125 MG, BID
     Route: 048

REACTIONS (9)
  - Headache [Unknown]
  - Unevaluable event [Unknown]
  - Sinusitis [Unknown]
  - Confusional state [Unknown]
  - Bronchitis [Unknown]
  - Dizziness [Unknown]
  - Pneumonia [Recovered/Resolved]
  - Anaemia [Unknown]
  - Loss of consciousness [Unknown]
